FAERS Safety Report 10217482 (Version 2)
Quarter: 2014Q2

REPORT INFORMATION
  Report Type: Spontaneous
  Country: US (occurrence: US)
  Receive Date: 20140604
  Receipt Date: 20140604
  Transmission Date: 20141212
  Serious: No
  Sender: FDA-Public Use
  Company Number: US-ASTRAZENECA-2013SE65929

PATIENT
  Sex: 0

DRUGS (1)
  1. VIMOVO [Suspect]
     Dosage: 500MG/20MG
     Route: 048

REACTIONS (2)
  - Dementia Alzheimer^s type [Unknown]
  - Incorrect product storage [Unknown]
